FAERS Safety Report 6292757-2 (Version None)
Quarter: 2009Q3

REPORT INFORMATION
  Report Type: 
  Country: None (occurrence: None)
  Receive Date: 20090731
  Receipt Date: 20090722
  Transmission Date: 20100115
  Serious: Yes (Hospitalization)
  Sender: FDA-Public Use
  Company Number: B0585132A

PATIENT
  Sex: Male

DRUGS (14)
  1. AUGMENTIN '125' [Suspect]
     Indication: DRUG USE FOR UNKNOWN INDICATION
     Dosage: 2G PER DAY
     Route: 042
     Dates: start: 20090507, end: 20090510
  2. HYPNOMIDATE [Suspect]
     Indication: DRUG USE FOR UNKNOWN INDICATION
     Route: 042
     Dates: start: 20090507, end: 20090507
  3. CELOCURINE [Suspect]
     Indication: DRUG USE FOR UNKNOWN INDICATION
     Route: 042
     Dates: start: 20090507, end: 20090507
  4. SUFENTANIL [Suspect]
     Indication: DRUG USE FOR UNKNOWN INDICATION
     Route: 042
     Dates: start: 20090507, end: 20090507
  5. CEFAZOLIN [Suspect]
     Indication: DRUG USE FOR UNKNOWN INDICATION
     Route: 042
     Dates: start: 20090507, end: 20090507
  6. NORADRENALINE [Concomitant]
     Route: 065
  7. FLUID [Concomitant]
     Route: 065
  8. PIRACETAM [Concomitant]
     Route: 065
  9. MODOPAR [Concomitant]
     Route: 065
  10. KARDEGIC [Concomitant]
     Route: 065
  11. ALLOPURINOL [Concomitant]
     Route: 065
  12. CITALOPRAM HYDROBROMIDE [Concomitant]
     Route: 065
  13. KENZEN [Concomitant]
     Route: 065
  14. JOSIR [Concomitant]
     Route: 065

REACTIONS (1)
  - ANGIOEDEMA [None]
